FAERS Safety Report 16464981 (Version 2)
Quarter: 2019Q3

REPORT INFORMATION
  Report Type: Spontaneous
  Country: BR (occurrence: BR)
  Receive Date: 20190621
  Receipt Date: 20190719
  Transmission Date: 20191004
  Serious: No
  Sender: FDA-Public Use
  Company Number: BR-ALLERGAN-1925651US

PATIENT
  Sex: Female

DRUGS (2)
  1. ATROPINA 1% [Suspect]
     Active Substance: ATROPINE
     Indication: SALIVARY HYPERSECRETION
     Route: 065
  2. ATROPINA 0.5% [Suspect]
     Active Substance: ATROPINE SULFATE
     Indication: SALIVARY HYPERSECRETION
     Route: 065

REACTIONS (1)
  - Off label use [Unknown]
